FAERS Safety Report 9375085 (Version 5)
Quarter: 2016Q2

REPORT INFORMATION
  Report Type: Spontaneous
  Country: US (occurrence: US)
  Receive Date: 20130628
  Receipt Date: 20160504
  Transmission Date: 20160815
  Serious: Yes (Other)
  Sender: FDA-Public Use
  Company Number: US-PFIZER INC-2013191972

PATIENT
  Age: 64 Year
  Sex: Female
  Weight: 81.91 kg

DRUGS (5)
  1. LANTUS [Concomitant]
     Active Substance: INSULIN GLARGINE
     Indication: DIABETES MELLITUS
     Dosage: 50MG IN THE MORNING AND 35MG IN THE EVENING
  2. LYRICA [Suspect]
     Active Substance: PREGABALIN
     Indication: FIBROMYALGIA
     Dosage: 75 MG, 4X/DAY
  3. NOVOLOG [Concomitant]
     Active Substance: INSULIN ASPART
     Indication: DIABETES MELLITUS
     Dosage: UNK
  4. NORCO [Concomitant]
     Active Substance: ACETAMINOPHEN\HYDROCODONE BITARTRATE
     Indication: BACK DISORDER
     Dosage: UNK
     Dates: start: 2015
  5. ATENOLOL. [Concomitant]
     Active Substance: ATENOLOL
     Indication: CARDIAC DISORDER
     Dosage: 25 MG, 3X/DAY

REACTIONS (13)
  - Dyspnoea [Unknown]
  - Drug withdrawal syndrome [Not Recovered/Not Resolved]
  - Drug tolerance [Unknown]
  - Carotid artery occlusion [Unknown]
  - Drug ineffective [Unknown]
  - Pain [Not Recovered/Not Resolved]
  - Cough [Unknown]
  - Cardiac disorder [Unknown]
  - Headache [Not Recovered/Not Resolved]
  - Thinking abnormal [Unknown]
  - Atrioventricular block [Unknown]
  - Brain hypoxia [Unknown]
  - Crying [Not Recovered/Not Resolved]

NARRATIVE: CASE EVENT DATE: 20130222
